FAERS Safety Report 4610537-8 (Version None)
Quarter: 2005Q1

REPORT INFORMATION
  Report Type: 
  Country: None (occurrence: None)
  Receive Date: 20050316
  Receipt Date: 20050305
  Transmission Date: 20050727
  Serious: Yes (Hospitalization)
  Sender: FDA-Public Use
  Company Number: 2005040402

PATIENT
  Age: 78 Year
  Sex: Male
  Weight: 74.8435 kg

DRUGS (1)
  1. SUDAFED 12 HOUR [Suspect]
     Indication: NASOPHARYNGITIS
     Dosage: 15 TABS BETWEEN 8:30 AM TO 7:30 PM, ORAL
     Route: 048
     Dates: start: 20050304, end: 20050304

REACTIONS (10)
  - DIFFICULTY IN WALKING [None]
  - DIZZINESS [None]
  - HEART RATE INCREASED [None]
  - HYPOTENSION [None]
  - LUNG INFECTION [None]
  - MUSCULOSKELETAL STIFFNESS [None]
  - OVERDOSE [None]
  - PULMONARY OEDEMA [None]
  - STOMACH DISCOMFORT [None]
  - TREMOR [None]
